FAERS Safety Report 13389269 (Version 1)
Quarter: 2017Q1

REPORT INFORMATION
  Report Type: Spontaneous
  Country: FR (occurrence: FR)
  Receive Date: 20170330
  Receipt Date: 20170330
  Transmission Date: 20170429
  Serious: Yes (Hospitalization, Other)
  Sender: FDA-Public Use
  Company Number: FR-009507513-1703FRA002979

PATIENT
  Sex: Male

DRUGS (3)
  1. LIPTRUZET [Suspect]
     Active Substance: ATORVASTATIN CALCIUM\EZETIMIBE
     Indication: LOW DENSITY LIPOPROTEIN INCREASED
     Dosage: 1 DF, QD
     Route: 048
     Dates: start: 20170224, end: 20170301
  2. RAMIPRIL. [Concomitant]
     Active Substance: RAMIPRIL
     Indication: RETINOPATHY
  3. RAMIPRIL. [Concomitant]
     Active Substance: RAMIPRIL
     Indication: NEPHROPATHY
     Dosage: 1.25 MG, QD
     Dates: start: 2016

REACTIONS (1)
  - Ketoacidosis [Recovered/Resolved]

NARRATIVE: CASE EVENT DATE: 2017
